FAERS Safety Report 5133882-9 (Version None)
Quarter: 2006Q4

REPORT INFORMATION
  Report Type: 
  Country: None (occurrence: None)
  Receive Date: 20061018
  Receipt Date: 20061002
  Transmission Date: 20070319
  Serious: Yes (Hospitalization, Other)
  Sender: FDA-Public Use
  Company Number: US-2006-028117

PATIENT
  Age: 40 Year
  Sex: Male
  Weight: 104.3 kg

DRUGS (5)
  1. BETASERON [Suspect]
     Indication: RELAPSING-REMITTING MULTIPLE SCLEROSIS
     Dosage: 8 MIU, EVERY 2D, SUBCUTANEOUS
     Route: 058
     Dates: start: 20060726
  2. NEURONTIN [Concomitant]
  3. BACLOFEN [Concomitant]
  4. NORCO (HYDROCODONE BITARTRATE) [Concomitant]
  5. PEPCID [Concomitant]

REACTIONS (12)
  - CONDITION AGGRAVATED [None]
  - DEPRESSION [None]
  - DROOLING [None]
  - DYSKINESIA [None]
  - FACE INJURY [None]
  - GRAND MAL CONVULSION [None]
  - JAW DISORDER [None]
  - JOINT DISLOCATION [None]
  - LOSS OF CONSCIOUSNESS [None]
  - MEMORY IMPAIRMENT [None]
  - MUSCLE SPASMS [None]
  - RELAPSING-REMITTING MULTIPLE SCLEROSIS [None]
